FAERS Safety Report 19762967 (Version 1)
Quarter: 2021Q3

REPORT INFORMATION
  Report Type: Spontaneous
  Country: US (occurrence: US)
  Receive Date: 20210830
  Receipt Date: 20210830
  Transmission Date: 20211014
  Serious: Yes (Hospitalization)
  Sender: FDA-Public Use
  Company Number: US-CELGENEUS-USA-20210807554

PATIENT
  Sex: Female

DRUGS (2)
  1. REVLIMID [Suspect]
     Active Substance: LENALIDOMIDE
     Indication: MYELODYSPLASTIC SYNDROME
     Dosage: 5 MILLIGRAM
     Route: 048
     Dates: start: 20210721
  2. REVLIMID [Suspect]
     Active Substance: LENALIDOMIDE
     Dosage: REDUCED DOSE
     Route: 048
     Dates: start: 2021

REACTIONS (1)
  - Infection [Unknown]

NARRATIVE: CASE EVENT DATE: 2021
